FAERS Safety Report 5664637-4 (Version None)
Quarter: 2008Q1

REPORT INFORMATION
  Report Type: 
  Country: None (occurrence: None)
  Receive Date: 20080314
  Receipt Date: 20080312
  Transmission Date: 20080703
  Serious: Yes (Hospitalization, Disabling, Other)
  Sender: FDA-Public Use
  Company Number: US-MERCK-0705USA02792

PATIENT
  Age: 42 Year
  Sex: Female

DRUGS (6)
  1. FOSAMAX [Suspect]
     Indication: OSTEOPENIA
     Route: 048
     Dates: start: 19950101, end: 19960101
  2. FOSAMAX [Suspect]
     Route: 048
     Dates: end: 20060101
  3. FOSAMAX [Suspect]
     Route: 048
     Dates: start: 20060101, end: 20070101
  4. FOSAMAX [Suspect]
     Indication: STRESS FRACTURE
     Route: 048
     Dates: start: 19950101, end: 19960101
  5. FOSAMAX [Suspect]
     Route: 048
     Dates: end: 20060101
  6. FOSAMAX [Suspect]
     Route: 048
     Dates: start: 20060101, end: 20070101

REACTIONS (4)
  - CARPAL TUNNEL SYNDROME [None]
  - CHRONIC SINUSITIS [None]
  - OSTEOMYELITIS [None]
  - OSTEONECROSIS [None]
